FAERS Safety Report 9368932 (Version 5)
Quarter: 2020Q3

REPORT INFORMATION
  Report Type: Report from Study
  Country: DE (occurrence: DE)
  Receive Date: 20130626
  Receipt Date: 20200826
  Transmission Date: 20201103
  Serious: Yes (Hospitalization)
  Sender: FDA-Public Use
  Company Number: DE-ROCHE-1241517

PATIENT
  Age: 64 Year
  Sex: Female
  Weight: 79 kg

DRUGS (14)
  1. CAPECITABINE. [Suspect]
     Active Substance: CAPECITABINE
     Indication: COLORECTAL CANCER METASTATIC
     Dosage: DATE OF LAST DOSE PRIOR TO SAE UTI: 13/JUL/2012?DATE OF LAST DOSE PRIOR TO SAE RENAL FAILURE: 21/JUN
     Route: 048
     Dates: start: 20120103, end: 20130622
  2. VALORON (GERMANY) [Concomitant]
     Active Substance: TILIDINE HYDROCHLORIDE
     Dates: start: 20130622
  3. ACTRAPID INSULIN NOVO [Concomitant]
     Dosage: DOSE: 0036 IE
     Dates: start: 2005
  4. LYRICA [Concomitant]
     Active Substance: PREGABALIN
     Dates: start: 20130622
  5. NOVALGIN (METAMIZOLE SODIUM) [Concomitant]
     Active Substance: METAMIZOLE SODIUM
     Dates: start: 20130622
  6. ASPIRIN. [Concomitant]
     Active Substance: ASPIRIN
     Dates: start: 2008
  7. BEVACIZUMAB. [Suspect]
     Active Substance: BEVACIZUMAB
     Indication: COLORECTAL CANCER METASTATIC
     Dosage: DATE OF LAST DOSE PRIOR TO SAE UTI: 29/JUN/2012?DATE OF LAST DOSE PRIOR TO SAE RENAL FAILURE: 07/JUN
     Route: 042
     Dates: start: 20120103, end: 20130622
  8. IRINOTECAN [Suspect]
     Active Substance: IRINOTECAN
     Indication: COLORECTAL CANCER METASTATIC
     Dosage: LAST DOSE PRIOR TO SAE UTI: 29/JUN/2012?LAST DOSE PRIOR TO SAE RENAL FAILURE: 07/JUN/2013
     Route: 042
     Dates: start: 20120313, end: 20130622
  9. SIMVASTATIN. [Concomitant]
     Active Substance: SIMVASTATIN
     Dates: start: 201103
  10. CIPRALEX [Concomitant]
     Active Substance: ESCITALOPRAM OXALATE
     Dates: start: 20130621
  11. PALLADON [Concomitant]
     Active Substance: HYDROMORPHONE
     Dates: start: 20130624, end: 20130626
  12. CLEXANE [Concomitant]
     Active Substance: ENOXAPARIN SODIUM
     Dates: start: 20130621
  13. BISOPROLOL [Concomitant]
     Active Substance: BISOPROLOL
     Dosage: DOSE: 7.5, 18.75 MG
     Dates: start: 2008
  14. LANTUS [Concomitant]
     Active Substance: INSULIN GLARGINE
     Dosage: TOTAL DAILY DOSE: 0010 IE
     Dates: start: 2005

REACTIONS (2)
  - Urinary tract infection [Recovered/Resolved]
  - Renal failure [Recovered/Resolved with Sequelae]

NARRATIVE: CASE EVENT DATE: 20120716
